FAERS Safety Report 5526848-8 (Version None)
Quarter: 2007Q4

REPORT INFORMATION
  Report Type: 
  Country: None (occurrence: None)
  Receive Date: 20071127
  Receipt Date: 20071120
  Transmission Date: 20080405
  Serious: Yes (Hospitalization)
  Sender: FDA-Public Use
  Company Number: MX-ASTRAZENECA-2007UW26095

PATIENT
  Age: 689 Month
  Sex: Female
  Weight: 64 kg

DRUGS (3)
  1. NEXIUM [Suspect]
     Route: 048
     Dates: start: 20071023, end: 20071023
  2. LOSEC A [Concomitant]
     Dates: end: 20050101
  3. LOSEC A [Concomitant]
     Dates: start: 20070923, end: 20070923

REACTIONS (2)
  - DIARRHOEA HAEMORRHAGIC [None]
  - HAEMATEMESIS [None]
